FAERS Safety Report 5676563-5 (Version None)
Quarter: 2008Q1

REPORT INFORMATION
  Report Type: 
  Country: None (occurrence: None)
  Receive Date: 20080321
  Receipt Date: 20080321
  Transmission Date: 20080703
  Serious: Yes (Disabling)
  Sender: FDA-Public Use
  Company Number: None

PATIENT
  Age: 35 Year
  Sex: Female
  Weight: 59.4212 kg

DRUGS (1)
  1. ZICAM NASAL GEL [Suspect]
     Indication: NASOPHARYNGITIS
     Dosage: 1 SQUIRT EACH NOSTRIL 1 TIME NOSE
     Route: 045
     Dates: start: 20080227

REACTIONS (2)
  - ANOSMIA [None]
  - NASAL DISCOMFORT [None]
